FAERS Safety Report 5564720-8 (Version None)
Quarter: 2007Q4

REPORT INFORMATION
  Report Type: 
  Country: None (occurrence: None)
  Receive Date: 20071212
  Receipt Date: 20071130
  Transmission Date: 20080405
  Serious: Yes (Death)
  Sender: FDA-Public Use
  Company Number: A-JP2007-18366

PATIENT
  Age: 65 Year
  Sex: Female
  Weight: 39 kg

DRUGS (10)
  1. TRACLEER [Suspect]
     Indication: PULMONARY HYPERTENSION
     Dosage: 62.5 MG, BID, ORAL
     Route: 048
     Dates: start: 20070627, end: 20070725
  2. WARFARIN POTASSIUM (WARFARIN POTASSIUM) [Concomitant]
  3. SPIRONOLACTONE [Concomitant]
  4. PLAUNOTOL (PLAUNOTOL) [Concomitant]
  5. ERYTHROMYCIN ETHYLSUCCINATE [Concomitant]
  6. RISEDRONATE SODIUM [Concomitant]
  7. ALFACALCIDOL (ALFACALCIDOL) [Concomitant]
  8. CALCIUM LACTATE (CALCIUM LACTATE) [Concomitant]
  9. OXYGEN (OXYGEN) [Concomitant]
  10. FUROSEMIDE [Concomitant]

REACTIONS (2)
  - ASTHENIA [None]
  - DYSPNOEA [None]
